FAERS Safety Report 20146324 (Version 1)
Quarter: 2021Q4

REPORT INFORMATION
  Report Type: Report from Study
  Country: BR (occurrence: BR)
  Receive Date: 20211203
  Receipt Date: 20211203
  Transmission Date: 20220303
  Serious: Yes (Other)
  Sender: FDA-Public Use
  Company Number: BR-NOVARTISPH-NVSC2021BR272079

PATIENT
  Age: 41 Year
  Sex: Female

DRUGS (4)
  1. TAMOXIFEN [Suspect]
     Active Substance: TAMOXIFEN
     Indication: Breast cancer metastatic
     Dosage: UNK
     Route: 065
     Dates: start: 201804
  2. RIBOCICLIB [Suspect]
     Active Substance: RIBOCICLIB
     Indication: Breast cancer metastatic
     Dosage: 600 MG, QD (FOR 21DAY FOLLOWED BY A 7 DAY BREAK)
     Route: 065
  3. ZOLEDRONIC ACID [Suspect]
     Active Substance: ZOLEDRONIC ACID
     Indication: Product used for unknown indication
     Dosage: 4 MG (EVERY 12 WEEKS)
     Route: 065
  4. GOSERELIN [Concomitant]
     Active Substance: GOSERELIN
     Dosage: 3.6 MG (EVERY 28 DAYS)
     Route: 065

REACTIONS (7)
  - Recurrent cancer [Unknown]
  - Spinal cord compression [Unknown]
  - Spinal cord injury thoracic [Unknown]
  - Malignant neoplasm progression [Unknown]
  - Back pain [Unknown]
  - Hepatic mass [Unknown]
  - Osteolysis [Unknown]

NARRATIVE: CASE EVENT DATE: 20191001
